FAERS Safety Report 6848268-6 (Version None)
Quarter: 2010Q3

REPORT INFORMATION
  Report Type: 
  Country: None (occurrence: None)
  Receive Date: 20100716
  Receipt Date: 20100713
  Transmission Date: 20110219
  Serious: Yes (Hospitalization, Other)
  Sender: FDA-Public Use
  Company Number: US-ROCHE-687974

PATIENT
  Sex: Male

DRUGS (21)
  1. PEGINTERFERON ALFA-2A [Suspect]
     Indication: HEPATITIS C
     Dosage: FORM: PRE-FILLED SYRINGE;
     Route: 065
     Dates: start: 20090920
  2. PEGINTERFERON ALFA-2A [Suspect]
     Route: 065
  3. PEGINTERFERON ALFA-2A [Suspect]
     Route: 065
  4. PEGINTERFERON ALFA-2A [Suspect]
     Dosage: PATIENT IN WEEK 30 OF TREATMENT
     Route: 065
  5. PEGINTERFERON ALFA-2A [Suspect]
     Dosage: WEEK 33
     Route: 065
  6. PEGINTERFERON ALFA-2A [Suspect]
     Dosage: WEEK 43
     Route: 065
  7. RIBAVIRIN [Suspect]
     Indication: HEPATITIS C
     Dosage: NOTE: DIVIDED DOSES; PATIENT RECEIVED RIBASPHERE AND RIBAVIRIN (PAR)
     Route: 065
     Dates: start: 20090920
  8. RIBAVIRIN [Suspect]
     Dosage: DOSAGE REDUCED. IN DIVIDED DOSES.
     Route: 065
  9. LYRICA [Concomitant]
  10. FLUTICASONE [Concomitant]
  11. ADVAIR DISKUS 100/50 [Concomitant]
  12. SKELAXIN [Concomitant]
  13. VITAMIN B-12 [Concomitant]
  14. COMBIVENT [Concomitant]
  15. OXYCODONE HCL [Concomitant]
  16. LAMOTRIGINE [Concomitant]
     Dosage: FREQUENCY: AT BEDTIME
  17. MORPHINE [Concomitant]
  18. TRAZODONE HYDROCHLORIDE [Concomitant]
     Dosage: FREQUENCY: AT BED TIME
  19. LISINOPRIL [Concomitant]
  20. PROMETHAZINE [Concomitant]
  21. FENTANYL-75 [Concomitant]

REACTIONS (23)
  - ANAEMIA [None]
  - ANGER [None]
  - BRONCHITIS [None]
  - CONSTIPATION [None]
  - DYSGEUSIA [None]
  - DYSPNOEA [None]
  - HAEMORRHAGE [None]
  - INCREASED TENDENCY TO BRUISE [None]
  - INFECTION [None]
  - INSOMNIA [None]
  - NAUSEA [None]
  - NERVE INJURY [None]
  - OBSTRUCTION [None]
  - OEDEMA PERIPHERAL [None]
  - PANIC ATTACK [None]
  - PARAESTHESIA [None]
  - PERIPHERAL COLDNESS [None]
  - POST PROCEDURAL HAEMORRHAGE [None]
  - PROCEDURAL COMPLICATION [None]
  - PROCEDURAL PAIN [None]
  - SKIN DISORDER [None]
  - URINARY INCONTINENCE [None]
  - WHITE BLOOD CELL COUNT DECREASED [None]
